FAERS Safety Report 23703419 (Version 2)
Quarter: 2024Q2

REPORT INFORMATION
  Report Type: Spontaneous
  Country: IT (occurrence: IT)
  Receive Date: 20240403
  Receipt Date: 20240417
  Transmission Date: 20240716
  Serious: Yes (Hospitalization)
  Sender: FDA-Public Use
  Company Number: None

PATIENT
  Age: 63 Year
  Sex: Male
  Weight: 60 kg

DRUGS (2)
  1. LENVIMA [Suspect]
     Active Substance: LENVATINIB
     Indication: Thyroid cancer
     Route: 048
     Dates: start: 20200611, end: 20230312
  2. LENVIMA [Suspect]
     Active Substance: LENVATINIB
     Route: 048
     Dates: start: 20211203, end: 20230312

REACTIONS (1)
  - Myocardial ischaemia [Recovered/Resolved with Sequelae]

NARRATIVE: CASE EVENT DATE: 20230312
